FAERS Safety Report 19451680 (Version 1)
Quarter: 2021Q2

REPORT INFORMATION
  Report Type: Spontaneous
  Country: US (occurrence: US)
  Receive Date: 20210622
  Receipt Date: 20210622
  Transmission Date: 20210717
  Serious: Yes (Death)
  Sender: FDA-Public Use
  Company Number: None

PATIENT
  Age: 64 Year
  Sex: Female

DRUGS (23)
  1. SPIRIVA RESPIMAT [Concomitant]
     Active Substance: TIOTROPIUM BROMIDE
  2. CETIRIZINE [Concomitant]
     Active Substance: CETIRIZINE HYDROCHLORIDE
  3. SPIRONOLACTONE. [Concomitant]
     Active Substance: SPIRONOLACTONE
  4. ALBUTEROL HFA [Concomitant]
     Active Substance: ALBUTEROL SULFATE
  5. ALLOPURINIOL [Concomitant]
  6. FLONASE [Concomitant]
     Active Substance: FLUTICASONE PROPIONATE
  7. IRON [Concomitant]
     Active Substance: IRON
  8. AMBRISENTAN 10MG TABLETS 30/BO: 10MG [Suspect]
     Active Substance: AMBRISENTAN
     Indication: PULMONARY ARTERIAL HYPERTENSION
     Route: 048
     Dates: start: 20161021, end: 20210527
  9. FUROSEMIDE. [Concomitant]
     Active Substance: FUROSEMIDE
  10. FOLIC ACID. [Concomitant]
     Active Substance: FOLIC ACID
  11. TRAZODONE [Concomitant]
     Active Substance: TRAZODONE HYDROCHLORIDE
  12. METOLAZONE. [Concomitant]
     Active Substance: METOLAZONE
  13. SILDENAFIL. [Concomitant]
     Active Substance: SILDENAFIL
  14. OMEPRAZOLE. [Concomitant]
     Active Substance: OMEPRAZOLE
  15. NORCO [Concomitant]
     Active Substance: ACETAMINOPHEN\HYDROCODONE BITARTRATE
  16. MAGNESIUM OXIDE. [Concomitant]
     Active Substance: MAGNESIUM OXIDE
  17. POTASSIUM CHLORIDE. [Concomitant]
     Active Substance: POTASSIUM CHLORIDE
  18. WIXELA INHUB [Concomitant]
     Active Substance: FLUTICASONE PROPIONATE\SALMETEROL XINAFOATE
  19. TRIAMCINOLONE TOP CREAM [Concomitant]
  20. TREPROSTINIL. [Concomitant]
     Active Substance: TREPROSTINIL
  21. MONTELUKAST [Concomitant]
     Active Substance: MONTELUKAST SODIUM
  22. ATORVASTATIN [Concomitant]
     Active Substance: ATORVASTATIN
  23. ZOFRAN [Concomitant]
     Active Substance: ONDANSETRON HYDROCHLORIDE

REACTIONS (3)
  - Respiratory failure [None]
  - Cardiac arrest [None]
  - Haemodynamic instability [None]

NARRATIVE: CASE EVENT DATE: 20210430
